FAERS Safety Report 4758350-5 (Version None)
Quarter: 2005Q3

REPORT INFORMATION
  Report Type: 
  Country: None (occurrence: None)
  Receive Date: 20050826
  Receipt Date: 20050504
  Transmission Date: 20060218
  Serious: No
  Sender: FDA-Public Use
  Company Number: WAES 0505USA00599

PATIENT
  Age: 56 Year
  Sex: Female

DRUGS (3)
  1. ZETIA [Suspect]
     Indication: BLOOD CHOLESTEROL INCREASED
     Dosage: 10 MG DAILY PO
     Route: 048
     Dates: start: 20050418, end: 20050504
  2. CALCIUM GLUCONATE [Concomitant]
  3. VITAMINS [Concomitant]

REACTIONS (1)
  - CONTUSION [None]
